FAERS Safety Report 10598646 (Version 3)
Quarter: 2014Q4

REPORT INFORMATION
  Report Type: Spontaneous
  Country: US (occurrence: US)
  Receive Date: 20141121
  Receipt Date: 20141203
  Transmission Date: 20150529
  Serious: Yes (Death, Hospitalization, Other)
  Sender: FDA-Public Use
  Company Number: US-BAXTER-2014BAX067388

PATIENT
  Sex: Female

DRUGS (2)
  1. DIANEAL LOW CALCIUM PERITONEAL DIALYSIS SOLUTION WITH DEXTROSE [Suspect]
     Active Substance: CALCIUM CHLORIDE\DEXTROSE\MAGNESIUM CHLORIDE\SODIUM CHLORIDE\SODIUM LACTATE
     Indication: PERITONEAL DIALYSIS
     Route: 033
     Dates: end: 20141108
  2. DIANEAL LOW CALCIUM PERITONEAL DIALYSIS SOLUTION WITH DEXTROSE [Suspect]
     Active Substance: CALCIUM CHLORIDE\DEXTROSE\MAGNESIUM CHLORIDE\SODIUM CHLORIDE\SODIUM LACTATE
     Indication: PERITONEAL DIALYSIS
     Route: 033
     Dates: end: 20141108

REACTIONS (10)
  - Intestinal perforation [Unknown]
  - Poor quality drug administered [Fatal]
  - Chronic kidney disease [Fatal]
  - Haematochezia [Unknown]
  - Product contamination [Fatal]
  - Bacterial infection [Fatal]
  - Escherichia sepsis [Fatal]
  - Septic shock [Fatal]
  - Peritonitis bacterial [Fatal]
  - Abdominal pain lower [Unknown]

NARRATIVE: CASE EVENT DATE: 20141108
